FAERS Safety Report 8559384-5 (Version None)
Quarter: 2012Q3

REPORT INFORMATION
  Report Type: 
  Country: None (occurrence: None)
  Receive Date: 20120802
  Receipt Date: 20120723
  Transmission Date: 20120928
  Serious: Yes (Hospitalization, Other)
  Sender: FDA-Public Use
  Company Number: US-JNJFOC-20120518226

PATIENT
  Sex: Male
  Weight: 119.75 kg

DRUGS (18)
  1. COLCHICINE [Suspect]
     Indication: GOUT
     Route: 048
     Dates: start: 20120501
  2. FLOMAX [Concomitant]
     Route: 065
  3. DILAUDID [Concomitant]
     Route: 065
  4. AMBIEN [Concomitant]
     Route: 065
  5. VALIUM [Concomitant]
     Indication: DEPRESSION
     Route: 065
  6. HYDROCHLOROTHIAZIDE [Concomitant]
     Route: 065
  7. CYMBALTA [Concomitant]
     Route: 065
  8. LYRICA [Concomitant]
     Route: 065
  9. NOVOLOG [Suspect]
     Indication: DIABETES MELLITUS
     Dosage: 40 UNITS/SOLUTION BEFORE MEALS
     Route: 058
     Dates: start: 20110101, end: 20110101
  10. LISINOPRIL [Concomitant]
     Route: 065
  11. REMICADE [Suspect]
     Indication: CROHN'S DISEASE
     Route: 042
     Dates: start: 20040909, end: 20100101
  12. METHOTREXATE [Suspect]
     Indication: INTERVERTEBRAL DISC PROTRUSION
     Route: 048
     Dates: start: 20110101, end: 20110101
  13. SIMVASTATIN [Concomitant]
     Route: 065
  14. NEXIUM [Concomitant]
     Route: 065
  15. HUMALOG [Concomitant]
     Indication: TYPE 2 DIABETES MELLITUS
     Dosage: DOSE: 75/25, 27 UNITS IN THE MORNING AND 25 UNITS BEFORE DINNER
     Route: 065
  16. LEVEMIR [Suspect]
     Indication: DIABETES MELLITUS
     Dosage: 52 UNITS/ AT NIGHT/SUBCUTANEOUS
     Route: 058
  17. ONGLYZA [Concomitant]
     Indication: TYPE 2 DIABETES MELLITUS
     Route: 065
  18. REMICADE [Suspect]
     Route: 042
     Dates: start: 20100101

REACTIONS (17)
  - ARTHRITIS [None]
  - FISTULA [None]
  - INTERVERTEBRAL DISC PROTRUSION [None]
  - GOUT [None]
  - INFECTION [None]
  - DIABETES MELLITUS [None]
  - ABNORMAL LOSS OF WEIGHT [None]
  - ABASIA [None]
  - CHOLELITHIASIS [None]
  - SEPSIS [None]
  - PERINEAL CYST [None]
  - OXYGEN SATURATION DECREASED [None]
  - CONVULSION [None]
  - HEART RATE INCREASED [None]
  - INTERVERTEBRAL DISC DEGENERATION [None]
  - DIARRHOEA [None]
  - DECREASED IMMUNE RESPONSIVENESS [None]
